FAERS Safety Report 7607556-6 (Version None)
Quarter: 2011Q3

REPORT INFORMATION
  Report Type: 
  Country: None (occurrence: None)
  Receive Date: 20110713
  Receipt Date: 20110711
  Transmission Date: 20111222
  Serious: Yes (Hospitalization)
  Sender: FDA-Public Use
  Company Number: US-GILEAD-2011-0041373

PATIENT
  Age: 49 Year
  Sex: Female

DRUGS (2)
  1. LETAIRIS [Suspect]
     Indication: PRODUCT USED FOR UNKNOWN INDICATION
     Route: 048
     Dates: start: 20110521
  2. ADCIRCA [Concomitant]

REACTIONS (4)
  - RHEUMATOID ARTHRITIS [None]
  - WEIGHT DECREASED [None]
  - PARAPLEGIA [None]
  - URINARY TRACT INFECTION [None]
